FAERS Safety Report 5406898-2 (Version None)
Quarter: 2007Q3

REPORT INFORMATION
  Report Type: 
  Country: None (occurrence: None)
  Receive Date: 20070802
  Receipt Date: 20070718
  Transmission Date: 20080115
  Serious: Yes (Death)
  Sender: FDA-Public Use
  Company Number: GXKR2007IE06276

PATIENT
  Age: 3 Year
  Sex: Male

DRUGS (1)
  1. RIFAMPICIN [Suspect]
     Indication: MENINGITIS MENINGOCOCCAL

REACTIONS (3)
  - HAEMOLYTIC URAEMIC SYNDROME [None]
  - HAEMORRHAGE [None]
  - HYPOVOLAEMIC SHOCK [None]
